FAERS Safety Report 15842725 (Version 1)
Quarter: 2018Q4

REPORT INFORMATION
  Report Type: Spontaneous
  Country: US (occurrence: US)
  Receive Date: 20181226
  Receipt Date: 20181226
  Transmission Date: 20190205
  Serious: No
  Sender: FDA-Public Use
  Company Number: None

PATIENT
  Age: 69 Year
  Sex: Male
  Weight: 90.72 kg

DRUGS (9)
  1. MAGNASIUM [Concomitant]
  2. VITAMIN D3 [Concomitant]
     Active Substance: CHOLECALCIFEROL
  3. METOPROLOL. [Suspect]
     Active Substance: METOPROLOL
     Indication: BLOOD PRESSURE MEASUREMENT
     Route: 048
     Dates: start: 201808, end: 20181126
  4. WARFARIN [Concomitant]
     Active Substance: WARFARIN
  5. DILTIAZEM ER [Concomitant]
     Active Substance: DILTIAZEM
  6. METOPROLOL. [Suspect]
     Active Substance: METOPROLOL
     Indication: ATRIAL FIBRILLATION
  7. LOSARTAN POTASSIUM. [Concomitant]
     Active Substance: LOSARTAN POTASSIUM
  8. GEMFIBROZIL. [Concomitant]
     Active Substance: GEMFIBROZIL
  9. COQ10 [Concomitant]
     Active Substance: UBIDECARENONE

REACTIONS (8)
  - Feeling abnormal [None]
  - Headache [None]
  - Feeling cold [None]
  - Hypertension [None]
  - Asthenia [None]
  - Dyspnoea [None]
  - Heart rate increased [None]
  - Therapy change [None]
